FAERS Safety Report 7988022-5 (Version None)
Quarter: 2011Q4

REPORT INFORMATION
  Report Type: 
  Country: None (occurrence: None)
  Receive Date: 20111216
  Receipt Date: 20101201
  Transmission Date: 20120403
  Serious: No
  Sender: FDA-Public Use
  Company Number: US-BRISTOL-MYERS SQUIBB COMPANY-15413818

PATIENT
  Age: 49 Year
  Sex: Female

DRUGS (1)
  1. ABILIFY [Suspect]
     Indication: MAJOR DEPRESSION
     Dosage: ORIGINAL DOSE WAS 2 MG, INCREASED TO 5 MG DAILY ON 23-MAR-2010
     Route: 048
     Dates: start: 20100101

REACTIONS (1)
  - LEUKOPENIA [None]
